FAERS Safety Report 19745051 (Version 1)
Quarter: 2021Q3

REPORT INFORMATION
  Report Type: Spontaneous
  Country: US (occurrence: US)
  Receive Date: 20210824
  Receipt Date: 20210824
  Transmission Date: 20211014
  Serious: Yes (Hospitalization)
  Sender: FDA-Public Use
  Company Number: None

PATIENT
  Age: 54 Year
  Sex: Female
  Weight: 75 kg

DRUGS (1)
  1. ZOLEDRONIC ACID [Suspect]
     Active Substance: ZOLEDRONIC ACID
     Indication: OSTEOARTHRITIS
     Dosage: ?          OTHER FREQUENCY:1;?
     Route: 041

REACTIONS (5)
  - Chest discomfort [None]
  - Wheezing [None]
  - Dyspnoea [None]
  - Abdominal tenderness [None]
  - Influenza like illness [None]

NARRATIVE: CASE EVENT DATE: 20210804
